FAERS Safety Report 5764826-4 (Version None)
Quarter: 2008Q2

REPORT INFORMATION
  Report Type: 
  Country: None (occurrence: None)
  Receive Date: 20080609
  Receipt Date: 20080609
  Transmission Date: 20081010
  Serious: Yes (Death)
  Sender: FDA-Public Use
  Company Number: None

PATIENT
  Age: 74 Year
  Sex: Male

DRUGS (2)
  1. OXALIPLATIN [Suspect]
     Indication: OESOPHAGEAL CARCINOMA
     Dosage: 161.5MG EVERY 2 WEEKS IV
     Route: 042
     Dates: start: 20070105, end: 20070205
  2. CAPECITABINE [Suspect]
     Indication: OESOPHAGEAL CARCINOMA
     Dosage: 2300MG QD M-F PO
     Route: 048
     Dates: start: 20070108, end: 20070215

REACTIONS (3)
  - ASPIRATION [None]
  - CLOSTRIDIUM DIFFICILE COLITIS [None]
  - LUNG INFILTRATION [None]
